FAERS Safety Report 23767061 (Version 1)
Quarter: 2024Q2

REPORT INFORMATION
  Report Type: Other
  Country: CA (occurrence: CA)
  Receive Date: 20240422
  Receipt Date: 20240422
  Transmission Date: 20240715
  Serious: Yes (Death)
  Sender: FDA-Public Use
  Company Number: CA-OrBion Pharmaceuticals Private Limited-2155840

PATIENT
  Age: 33 Year
  Sex: Female

DRUGS (2)
  1. PANTOPRAZOLE SODIUM [Suspect]
     Active Substance: PANTOPRAZOLE SODIUM
     Indication: Gastrointestinal haemorrhage
     Route: 042
  2. CORTICOSTEROID NOS [Concomitant]
     Active Substance: CORTICOSTEROID NOS
     Route: 065

REACTIONS (1)
  - Drug ineffective [Fatal]
